FAERS Safety Report 18275232 (Version 1)
Quarter: 2020Q3

REPORT INFORMATION
  Report Type: Other
  Country: US (occurrence: US)
  Receive Date: 20200917
  Receipt Date: 20200917
  Transmission Date: 20201103
  Serious: Yes (Hospitalization, Other)
  Sender: FDA-Public Use
  Company Number: US-ROCHE-2674627

PATIENT

DRUGS (1)
  1. OCRELIZUMAB. [Suspect]
     Active Substance: OCRELIZUMAB
     Indication: MULTIPLE SCLEROSIS
     Route: 065

REACTIONS (6)
  - Basal cell carcinoma [Unknown]
  - Infusion related reaction [Unknown]
  - Infection [Unknown]
  - Neutropenia [Unknown]
  - Lymphopenia [Unknown]
  - Hypogammaglobulinaemia [Unknown]
